FAERS Safety Report 4649137-2 (Version None)
Quarter: 2005Q2

REPORT INFORMATION
  Report Type: 
  Country: None (occurrence: None)
  Receive Date: 20050429
  Receipt Date: 20050422
  Transmission Date: 20051028
  Serious: Yes (Other)
  Sender: FDA-Public Use
  Company Number: 200303260

PATIENT
  Age: 62 Year
  Sex: Male

DRUGS (4)
  1. QUILONORM RETARD [Suspect]
     Indication: MENTAL DISORDER
     Dosage: 1350MG PER DAY
     Route: 048
     Dates: start: 20010927
  2. EDRONAX [Concomitant]
     Dosage: 8MG UNKNOWN
     Route: 048
     Dates: start: 20020904
  3. SEROPRAM [Concomitant]
     Dosage: 30MG UNKNOWN
     Route: 048
     Dates: start: 20020711
  4. TEMESTA [Concomitant]
     Dosage: 1.25MG UNKNOWN
     Route: 048

REACTIONS (3)
  - AGGRESSION [None]
  - BLOOD THYROID STIMULATING HORMONE DECREASED [None]
  - HYPERTHYROIDISM [None]
